FAERS Safety Report 19615755 (Version 1)
Quarter: 2021Q3

REPORT INFORMATION
  Report Type: Spontaneous
  Country: AT (occurrence: AT)
  Receive Date: 20210727
  Receipt Date: 20210727
  Transmission Date: 20211014
  Serious: Yes (Other)
  Sender: FDA-Public Use
  Company Number: AT-PFIZER INC-202100911219

PATIENT
  Age: 57 Year
  Sex: Female

DRUGS (7)
  1. METAGELAN [Suspect]
     Active Substance: DIPYRONE
     Dosage: UNK, SINGLE
     Route: 065
  2. XYLONEURAL [Suspect]
     Active Substance: LIDOCAINE HYDROCHLORIDE
     Dosage: UNK
     Route: 065
  3. DAFLON [DIOSMIN] [Concomitant]
     Active Substance: DIOSMIN
     Dosage: UNK
  4. PANTOPRAZOLE [Suspect]
     Active Substance: PANTOPRAZOLE
     Dosage: UNK
     Route: 065
  5. VAXZEVRIA [Suspect]
     Active Substance: AZD-1222
     Dosage: UNKNOWN, SINGLE
     Route: 065
     Dates: start: 20210511, end: 20210511
  6. VOLTAREN [DICLOFENAC] [Suspect]
     Active Substance: DICLOFENAC SODIUM
     Dosage: UNK
     Route: 065
  7. THYREX [Concomitant]
     Active Substance: LEVOTHYROXINE SODIUM
     Dosage: UNK

REACTIONS (10)
  - Body temperature increased [Recovered/Resolved]
  - Neck pain [Unknown]
  - Peripheral swelling [Unknown]
  - Thrombocytopenia [Recovered/Resolved]
  - Vasculitis [Unknown]
  - Ear pruritus [Unknown]
  - Petechiae [Unknown]
  - Pruritus [Unknown]
  - Arthralgia [Unknown]
  - Piloerection [Recovered/Resolved]

NARRATIVE: CASE EVENT DATE: 20210513
